FAERS Safety Report 9531464 (Version 7)
Quarter: 2015Q1

REPORT INFORMATION
  Report Type: Spontaneous
  Country: US (occurrence: US)
  Receive Date: 20130918
  Receipt Date: 20150206
  Transmission Date: 20150721
  Serious: Yes (Hospitalization, Other)
  Sender: FDA-Public Use
  Company Number: US-SANOFI-AVENTIS-2013SA091570

PATIENT
  Age: 61 Year
  Sex: Female
  Weight: 60 kg

DRUGS (9)
  1. FABRAZYME [Suspect]
     Active Substance: AGALSIDASE BETA
     Indication: FABRY^S DISEASE
     Route: 042
     Dates: start: 201106
  2. TYLENOL [Concomitant]
     Active Substance: ACETAMINOPHEN
     Route: 048
  3. ACETAMINOPHEN. [Concomitant]
     Active Substance: ACETAMINOPHEN
     Indication: PREMEDICATION
     Dosage: 1000 (UNITS NOT SPECIFIED)
     Route: 048
  4. BENADRYL [Concomitant]
     Active Substance: DIPHENHYDRAMINE HYDROCHLORIDE
     Indication: PREMEDICATION
     Dosage: 30 MINS PRIOR TO FABRAZYME
     Route: 048
  5. FABRAZYME [Suspect]
     Active Substance: AGALSIDASE BETA
     Indication: FABRY^S DISEASE
     Route: 042
     Dates: start: 201106
  6. FABRAZYME [Suspect]
     Active Substance: AGALSIDASE BETA
     Indication: FABRY^S DISEASE
     Dosage: FREQUENCY : EVERY 2 MONTHS
     Route: 042
  7. FABRAZYME [Suspect]
     Active Substance: AGALSIDASE BETA
     Indication: FABRY^S DISEASE
     Dosage: FREQUENCY : EVERY 2 MONTHS
     Route: 042
  8. COUMADIN [Concomitant]
     Active Substance: WARFARIN SODIUM
  9. CLARITIN [Concomitant]
     Active Substance: LORATADINE
     Indication: PREMEDICATION
     Route: 048

REACTIONS (23)
  - Hyperhidrosis [Unknown]
  - Musculoskeletal pain [Not Recovered/Not Resolved]
  - Cardiac pacemaker insertion [Unknown]
  - Headache [Unknown]
  - Malaise [Not Recovered/Not Resolved]
  - Blood pressure decreased [Unknown]
  - Feeling abnormal [Unknown]
  - Anaemia [Not Recovered/Not Resolved]
  - Cognitive disorder [Not Recovered/Not Resolved]
  - Pyrexia [Not Recovered/Not Resolved]
  - Memory impairment [Not Recovered/Not Resolved]
  - Head injury [Unknown]
  - Oxygen saturation decreased [Unknown]
  - Encephalitis viral [Not Recovered/Not Resolved]
  - Road traffic accident [Unknown]
  - Cardiac disorder [Unknown]
  - Dehydration [Unknown]
  - Internal haemorrhage [Not Recovered/Not Resolved]
  - Influenza [Not Recovered/Not Resolved]
  - Dizziness [Not Recovered/Not Resolved]
  - Hepatitis B [Unknown]
  - Hepatitis C virus test positive [Not Recovered/Not Resolved]
  - Poor venous access [Unknown]

NARRATIVE: CASE EVENT DATE: 201309
